FAERS Safety Report 26035977 (Version 1)
Quarter: 2025Q4

REPORT INFORMATION
  Report Type: Report from Study
  Country: US (occurrence: US)
  Receive Date: 20251112
  Receipt Date: 20251112
  Transmission Date: 20260117
  Serious: Yes (Hospitalization, Other)
  Sender: PFIZER
  Company Number: US-PFIZER INC-PV202500130123

PATIENT
  Age: 56 Year
  Sex: Male
  Weight: 79.7 kg

DRUGS (15)
  1. CIPROFLOXACIN [Suspect]
     Active Substance: CIPROFLOXACIN
     Indication: Gastritis
     Dosage: 500 MG, 2X/DAY
     Route: 048
     Dates: start: 20250311
  2. TREPROSTINIL SODIUM [Suspect]
     Active Substance: TREPROSTINIL SODIUM
     Indication: Pulmonary arterial hypertension
     Dosage: 0.09 UG/KG (CONTINUOUS)
     Route: 041
  3. TREPROSTINIL SODIUM [Suspect]
     Active Substance: TREPROSTINIL SODIUM
     Dosage: 0.007 UG/KG (CONTINUOUS)
     Route: 041
  4. TREPROSTINIL SODIUM [Suspect]
     Active Substance: TREPROSTINIL SODIUM
     Dosage: UNK
     Route: 041
     Dates: start: 202104
  5. ADCIRCA [Suspect]
     Active Substance: TADALAFIL
     Indication: Pulmonary arterial hypertension
     Dosage: 20 MG [2 TABLETS BY MOUTH DALLY], QD
     Route: 048
  6. DUPIXENT [Suspect]
     Active Substance: DUPILUMAB
     Dosage: UNK
  7. LETAIRIS [Suspect]
     Active Substance: AMBRISENTAN
     Indication: Pulmonary arterial hypertension
     Dosage: 10 MG, 1X/DAY
     Route: 048
  8. FAMOTIDINE [Suspect]
     Active Substance: FAMOTIDINE
     Indication: Gastritis
     Dosage: 20 MG
     Route: 042
     Dates: start: 20250320
  9. OLOPATADINE [Suspect]
     Active Substance: OLOPATADINE
     Dosage: UNK (SPRAY)
     Route: 045
  10. XHANCE [Suspect]
     Active Substance: FLUTICASONE PROPIONATE
     Dosage: UNK (SPRAY)
     Route: 045
  11. PROTONIX [Suspect]
     Active Substance: PANTOPRAZOLE SODIUM
     Indication: Gastritis
     Dosage: 40 MG
     Route: 042
     Dates: start: 20250320
  12. SERALUTINIB [Concomitant]
     Active Substance: SERALUTINIB
     Dosage: 15 MG
     Dates: start: 202503
  13. LASIX [Concomitant]
     Active Substance: FUROSEMIDE
     Dosage: UNK
  14. FERROUS SULFATE [Concomitant]
     Active Substance: FERROUS SULFATE
     Dosage: 325 MG
  15. TRELEGY ELLIPTA [Concomitant]
     Active Substance: FLUTICASONE FUROATE\UMECLIDINIUM BROMIDE\VILANTEROL TRIFENATATE
     Dosage: UNK

REACTIONS (45)
  - Anaphylactic reaction [Recovered/Resolved]
  - Tachypnoea [Unknown]
  - Tachycardia [Unknown]
  - Hypotension [Unknown]
  - Chills [Unknown]
  - Cold sweat [Unknown]
  - Nausea [Unknown]
  - Pyrexia [Unknown]
  - Erythema [Unknown]
  - Gastritis [Recovering/Resolving]
  - Abdominal pain lower [Recovered/Resolved]
  - Abdominal discomfort [Recovered/Resolved]
  - Reflux gastritis [Unknown]
  - Epigastric discomfort [Unknown]
  - Gastrointestinal wall thickening [Unknown]
  - Dyspepsia [Unknown]
  - Pneumonia [Unknown]
  - Pneumonia aspiration [Unknown]
  - Atelectasis [Unknown]
  - Corynebacterium sepsis [Unknown]
  - Hypoxia [Unknown]
  - Cardiac failure [Unknown]
  - Heart failure with preserved ejection fraction [Unknown]
  - Tricuspid valve thickening [Unknown]
  - Tricuspid valve incompetence [Unknown]
  - Pulmonary valve incompetence [Unknown]
  - Mitral valve incompetence [Unknown]
  - Mitral valve thickening [Unknown]
  - Neoplasm [Unknown]
  - Polyp [Unknown]
  - Rectal neoplasm [Unknown]
  - Therapy partial responder [Unknown]
  - Therapy non-responder [Unknown]
  - Mitral valve calcification [Unknown]
  - Aortic valve thickening [Unknown]
  - Aortic valve calcification [Unknown]
  - Pulmonary arterial pressure abnormal [Unknown]
  - Chest discomfort [Not Recovered/Not Resolved]
  - Pulmonary mass [Unknown]
  - Lung consolidation [Unknown]
  - Nasopharyngitis [Recovered/Resolved]
  - Productive cough [Recovered/Resolved]
  - Diarrhoea [Unknown]
  - Rhinorrhoea [Unknown]
  - Hyperlactacidaemia [Unknown]

NARRATIVE: CASE EVENT DATE: 20250101
